FAERS Safety Report 10102539 (Version 1)
Quarter: 2014Q2

REPORT INFORMATION
  Report Type: Spontaneous
  Country: US (occurrence: US)
  Receive Date: 20140424
  Receipt Date: 20140424
  Transmission Date: 20141212
  Serious: No
  Sender: FDA-Public Use
  Company Number: US-TEVA-477044USA

PATIENT
  Sex: Female

DRUGS (1)
  1. COPAXONE [Suspect]

REACTIONS (9)
  - Weight decreased [Unknown]
  - Chills [Unknown]
  - Feeling jittery [Unknown]
  - Feeling abnormal [Unknown]
  - Vomiting [Unknown]
  - Decreased appetite [Unknown]
  - Gastrointestinal hypomotility [Unknown]
  - Injection site reaction [Unknown]
  - Thinking abnormal [Unknown]
